FAERS Safety Report 11575248 (Version 1)
Quarter: 2015Q3

REPORT INFORMATION
  Report Type: Spontaneous
  Country: GB (occurrence: GB)
  Receive Date: 20150930
  Receipt Date: 20150930
  Transmission Date: 20151125
  Serious: Yes (Other)
  Sender: FDA-Public Use
  Company Number: GB-APOTEX-2015AP013135

PATIENT
  Age: 24 Year
  Sex: Male

DRUGS (1)
  1. PAXIL [Suspect]
     Active Substance: PAROXETINE HYDROCHLORIDE
     Indication: DEPRESSION
     Dosage: UNK
     Route: 065
     Dates: start: 2001

REACTIONS (10)
  - Tremor [Not Recovered/Not Resolved]
  - Drug withdrawal syndrome [Unknown]
  - Ill-defined disorder [Unknown]
  - Depressed mood [Unknown]
  - Autism spectrum disorder [Unknown]
  - Drug administered to patient of inappropriate age [Unknown]
  - Mitral valve incompetence [Unknown]
  - Bradycardia [Unknown]
  - Tongue biting [Unknown]
  - Mania [Unknown]
